FAERS Safety Report 5750572-X (Version None)
Quarter: 2008Q2

REPORT INFORMATION
  Report Type: 
  Country: None (occurrence: None)
  Receive Date: 20080528
  Receipt Date: 20080520
  Transmission Date: 20081010
  Serious: Yes (Disabling, Other)
  Sender: FDA-Public Use
  Company Number: US-BRISTOL-MYERS SQUIBB COMPANY-14201271

PATIENT
  Age: 3 Year
  Sex: Female

DRUGS (1)
  1. SINEMET [Suspect]
     Indication: DYSTONIA
     Route: 065
     Dates: start: 20060301

REACTIONS (6)
  - CHOKING [None]
  - COORDINATION ABNORMAL [None]
  - DYSPHAGIA [None]
  - DYSPNOEA [None]
  - GAIT DISTURBANCE [None]
  - THERAPEUTIC RESPONSE UNEXPECTED WITH DRUG SUBSTITUTION [None]
